FAERS Safety Report 24827824 (Version 1)
Quarter: 2025Q1

REPORT INFORMATION
  Report Type: Report from Study
  Country: CA (occurrence: CA)
  Receive Date: 20250109
  Receipt Date: 20250109
  Transmission Date: 20250409
  Serious: Yes (Other)
  Sender: NOVARTIS
  Company Number: CA-002147023-NVSC2024CA237565

PATIENT
  Age: 29 Year
  Sex: Female

DRUGS (1)
  1. KESIMPTA [Suspect]
     Active Substance: OFATUMUMAB
     Indication: Relapsing-remitting multiple sclerosis
     Route: 058
     Dates: start: 20241210

REACTIONS (3)
  - Lower respiratory tract infection [Unknown]
  - Myalgia [Unknown]
  - Headache [Unknown]

NARRATIVE: CASE EVENT DATE: 20241210
